FAERS Safety Report 5379916-8 (Version None)
Quarter: 2007Q3

REPORT INFORMATION
  Report Type: 
  Country: None (occurrence: None)
  Receive Date: 20070706
  Receipt Date: 20070628
  Transmission Date: 20080115
  Serious: Yes (Other)
  Sender: FDA-Public Use
  Company Number: PHEH2007US09368

PATIENT
  Age: 49 Year
  Sex: Female

DRUGS (7)
  1. TRILEPTAL [Suspect]
  2. PEGASYS [Suspect]
     Dates: start: 20060515, end: 20070309
  3. RIBAVIRIN [Suspect]
     Dates: start: 20060515, end: 20070309
  4. BACTRIM [Suspect]
     Dates: start: 20070215
  5. LAMICTAL [Suspect]
  6. EFFEXOR [Suspect]
     Dosage: 300 MG, UNK
  7. EFFEXOR [Suspect]
     Dosage: 150MG, UNK

REACTIONS (18)
  - ASTHENIA [None]
  - BONE PAIN [None]
  - DRUG HYPERSENSITIVITY [None]
  - ERYTHEMA [None]
  - FATIGUE [None]
  - FOOD ALLERGY [None]
  - GASTRIC BYPASS [None]
  - HEPATIC ENZYME INCREASED [None]
  - HYPOKINESIA [None]
  - NERVOUS SYSTEM DISORDER [None]
  - NEUROPATHY [None]
  - PAIN [None]
  - PALMAR-PLANTAR ERYTHRODYSAESTHESIA SYNDROME [None]
  - PRESYNCOPE [None]
  - PRURITUS [None]
  - SKIN BURNING SENSATION [None]
  - SPEECH DISORDER [None]
  - STEVENS-JOHNSON SYNDROME [None]
